FAERS Safety Report 8178627-3 (Version None)
Quarter: 2012Q1

REPORT INFORMATION
  Report Type: 
  Country: None (occurrence: None)
  Receive Date: 20120301
  Receipt Date: 20120220
  Transmission Date: 20120608
  Serious: Yes (Other)
  Sender: FDA-Public Use
  Company Number: GB-MERCK-1202GBR00114

PATIENT
  Age: 31 Year
  Sex: Female

DRUGS (5)
  1. ISENTRESS [Suspect]
     Route: 048
     Dates: start: 20120105
  2. EMTRICITABINE AND TENOFOVIR DISOPROXIL FUMARATE [Concomitant]
     Route: 048
     Dates: start: 20110826
  3. DARUNAVIR [Concomitant]
     Route: 048
     Dates: start: 20110826
  4. RITONAVIR [Concomitant]
     Route: 048
     Dates: start: 20110826
  5. NEVIRAPINE [Concomitant]
     Route: 048
     Dates: start: 20120105

REACTIONS (3)
  - MATERNAL EXPOSURE TIMING UNSPECIFIED [None]
  - COMPLICATION OF PREGNANCY [None]
  - PREMATURE LABOUR [None]
